FAERS Safety Report 8522013-0 (Version None)
Quarter: 2012Q3

REPORT INFORMATION
  Report Type: 
  Country: None (occurrence: None)
  Receive Date: 20120719
  Receipt Date: 20120525
  Transmission Date: 20120928
  Serious: Yes (Life-Threatening, Hospitalization, Other)
  Sender: FDA-Public Use
  Company Number: JP-BRISTOL-MYERS SQUIBB COMPANY-16355497

PATIENT
  Age: 87 Year
  Sex: Female

DRUGS (19)
  1. CRESTOR [Concomitant]
     Route: 048
     Dates: end: 20120116
  2. AMARYL [Concomitant]
     Route: 048
     Dates: end: 20120116
  3. SITAGLIPTIN PHOSPHATE [Concomitant]
     Route: 048
     Dates: start: 20120116
  4. CALBLOCK [Concomitant]
     Dosage: 8MG:UNK-16JAN2012 16MG/DAY:22JAN2012
     Route: 048
  5. VERAPAMIL HCL [Concomitant]
     Route: 048
     Dates: start: 20120125
  6. NITROGLYCERIN [Concomitant]
     Route: 060
  7. LYRICA [Concomitant]
     Route: 048
     Dates: end: 20120116
  8. MECOBALAMIN [Concomitant]
     Route: 048
     Dates: end: 20120116
  9. BUP-4 [Concomitant]
     Route: 048
     Dates: end: 20120116
  10. HYZAAR [Concomitant]
     Dosage: PREMINENT
     Route: 048
     Dates: start: 20120116
  11. EVISTA [Concomitant]
     Route: 048
     Dates: end: 20120116
  12. DILTIAZEM HCL [Concomitant]
     Route: 048
     Dates: end: 20120116
  13. NITRODERM [Concomitant]
  14. ATENOLOL [Concomitant]
     Route: 048
     Dates: end: 20120116
  15. MERISLON [Concomitant]
     Route: 048
     Dates: start: 20120112, end: 20120116
  16. AVAPRO [Suspect]
     Indication: HYPERTENSION
     Route: 048
     Dates: start: 20120112, end: 20120116
  17. ASPIRIN [Concomitant]
     Route: 048
     Dates: end: 20120116
  18. METFORMIN HCL [Suspect]
     Dosage: UNK-16JAN2012 16-JAN-2012-STOPED
     Route: 048
     Dates: end: 20120116
  19. LOXOPROFEN [Concomitant]
     Route: 048
     Dates: end: 20120116

REACTIONS (10)
  - BLOOD LACTIC ACID INCREASED [None]
  - RENAL ARTERY STENOSIS [None]
  - LOSS OF CONSCIOUSNESS [None]
  - URINARY TRACT INFECTION [None]
  - DEMENTIA [None]
  - BLOOD PRESSURE DECREASED [None]
  - HYPERKALAEMIA [None]
  - OVERDOSE [None]
  - RENAL CYST [None]
  - SICK SINUS SYNDROME [None]
